FAERS Safety Report 22242039 (Version 1)
Quarter: 2023Q2

REPORT INFORMATION
  Report Type: Spontaneous
  Country: JP (occurrence: JP)
  Receive Date: 20230421
  Receipt Date: 20230421
  Transmission Date: 20230722
  Serious: Yes (Other)
  Sender: FDA-Public Use
  Company Number: JP-002147023-NVSC2023JP090720

PATIENT

DRUGS (4)
  1. DEXAMETHASONE [Suspect]
     Active Substance: DEXAMETHASONE
     Indication: Plasma cell myeloma refractory
     Dosage: 40 MG, CYCLIC (ORALLY OR INTRAVENOUSLY ON DAYS 1, 8, 15, AND 22 OF EACH CYCLE)
     Route: 065
  2. CARFILZOMIB [Suspect]
     Active Substance: CARFILZOMIB
     Indication: Plasma cell myeloma refractory
     Dosage: 20 MG/M2, CYCLIC (FOR DAYS 1 AND 2 OF CYCLE 1)
     Route: 042
  3. CARFILZOMIB [Suspect]
     Active Substance: CARFILZOMIB
     Dosage: 27 MG/M2, CYCLIC
     Route: 042
  4. LENALIDOMIDE [Suspect]
     Active Substance: LENALIDOMIDE
     Indication: Plasma cell myeloma refractory
     Dosage: 25 MG, CYCLIC (ON DAYS 1 TO 21 OF EACH CYCLE)
     Route: 048

REACTIONS (3)
  - Neutropenia [Unknown]
  - Thrombocytopenia [Unknown]
  - Product use in unapproved indication [Unknown]
